FAERS Safety Report 24669742 (Version 1)
Quarter: 2024Q4

REPORT INFORMATION
  Report Type: Spontaneous
  Country: EG (occurrence: EG)
  Receive Date: 20241127
  Receipt Date: 20241127
  Transmission Date: 20250115
  Serious: Yes (Disabling, Other)
  Sender: ROCHE
  Company Number: EG-002147023-PHHY2017EG071601

PATIENT
  Age: 65 Year
  Sex: Male

DRUGS (1)
  1. LUCENTIS [Suspect]
     Active Substance: RANIBIZUMAB
     Indication: Retinal vein occlusion
     Route: 031
     Dates: start: 20170508

REACTIONS (10)
  - Endophthalmitis [Recovered/Resolved with Sequelae]
  - Eye pain [Unknown]
  - Ocular hyperaemia [Unknown]
  - Visual impairment [Unknown]
  - Uveitis [Unknown]
  - Iridocyclitis [Unknown]
  - Vitritis [Unknown]
  - Iritis [Unknown]
  - Eye inflammation [Unknown]
  - Vitreous disorder [Unknown]

NARRATIVE: CASE EVENT DATE: 20170508
